FAERS Safety Report 11860585 (Version 1)
Quarter: 2015Q4

REPORT INFORMATION
  Report Type: Spontaneous
  Country: IT (occurrence: IT)
  Receive Date: 20151222
  Receipt Date: 20151222
  Transmission Date: 20160305
  Serious: Yes (Other)
  Sender: FDA-Public Use
  Company Number: IT-ASTRAZENECA-2015SF27148

PATIENT
  Age: 29747 Day
  Sex: Female
  Weight: 54 kg

DRUGS (7)
  1. LASIX [Concomitant]
     Active Substance: FUROSEMIDE
     Dosage: 25 MG TABLET 1DF UNKNOWN
     Route: 048
  2. BRILIQUE [Suspect]
     Active Substance: TICAGRELOR
     Indication: PROPHYLAXIS
     Dosage: 90 MG FILM COATED TABLET 2 DF DAILY
     Route: 048
     Dates: start: 20150727
  3. CARDIOASPIRIN (ASA) [Interacting]
     Active Substance: ASPIRIN
     Indication: PROPHYLAXIS
     Dosage: 100 MG GASTRO-RESISTANT TABLET 1 DF DAILY
     Route: 048
     Dates: start: 20150727
  4. SPIRONOLACTONE. [Concomitant]
     Active Substance: SPIRONOLACTONE
  5. METOPROLOL [Concomitant]
     Active Substance: METOPROLOL
     Route: 048
  6. DIAMICRON (GLICLAZIDE) [Concomitant]
     Active Substance: GLICLAZIDE
     Dosage: 60 MG MODIFIED RELEASE TABLET 1DF UNKNOWN
     Route: 048
  7. ATORVASTATIN [Concomitant]
     Active Substance: ATORVASTATIN
     Route: 048

REACTIONS (2)
  - Subcutaneous haematoma [Recovering/Resolving]
  - Drug interaction [Recovering/Resolving]

NARRATIVE: CASE EVENT DATE: 20150728
